FAERS Safety Report 15074830 (Version 1)
Quarter: 2018Q2

REPORT INFORMATION
  Report Type: Report from Study
  Country: US (occurrence: US)
  Receive Date: 20180627
  Receipt Date: 20180627
  Transmission Date: 20180711
  Serious: Yes (Other)
  Sender: FDA-Public Use
  Company Number: US-SAOL THERAPEUTICS-2017SAO01437

PATIENT
  Age: 84 Year
  Sex: Female

DRUGS (8)
  1. BACLOFEN. [Suspect]
     Active Substance: BACLOFEN
     Dosage: 263.14 ?G, \DAY
     Route: 037
     Dates: start: 20170111
  2. BACLOFEN. [Suspect]
     Active Substance: BACLOFEN
     Dosage: 288.17 ?G, \DAY
     Route: 037
     Dates: start: 20170210
  3. SUFENTA [Suspect]
     Active Substance: SUFENTANIL CITRATE
     Dosage: 139.92 ?G, \DAY
     Route: 037
     Dates: start: 20170210
  4. BUPIVACAINE. [Suspect]
     Active Substance: BUPIVACAINE
     Dosage: 6.579 MG, \DAY
     Route: 037
     Dates: start: 20170210
  5. CLONIDINE. [Suspect]
     Active Substance: CLONIDINE
     Dosage: 657.7 ?G, \DAY
     Route: 037
     Dates: start: 20170111, end: 20170210
  6. BUPIVACAINE. [Suspect]
     Active Substance: BUPIVACAINE
     Dosage: 6.008 MG, \DAY
     Route: 037
     Dates: start: 20170111, end: 20170210
  7. SUFENTA [Suspect]
     Active Substance: SUFENTANIL CITRATE
     Dosage: 127.77 ?G, \DAY
     Route: 037
     Dates: start: 20170111, end: 20170210
  8. CLONIDINE. [Suspect]
     Active Substance: CLONIDINE
     Dosage: 720.2 ?G, \DAY
     Route: 037
     Dates: start: 20170210

REACTIONS (4)
  - Mental status changes [Recovered/Resolved]
  - Incorrect route of drug administration [Recovered/Resolved]
  - Lethargy [Unknown]
  - Somnolence [Unknown]

NARRATIVE: CASE EVENT DATE: 20170224
